FAERS Safety Report 9476404 (Version 3)
Quarter: 2013Q4

REPORT INFORMATION
  Report Type: Spontaneous
  Country: US (occurrence: US)
  Receive Date: 20130826
  Receipt Date: 20131023
  Transmission Date: 20140711
  Serious: No
  Sender: FDA-Public Use
  Company Number: US-009507513-1308USA007036

PATIENT
  Age: 24 Year
  Sex: Female

DRUGS (1)
  1. PROVENTIL [Suspect]
     Indication: ASTHMA
     Dosage: AS NEEDED BASIS, SOMETIMES 2-4 PUFFS DAILY
     Route: 055

REACTIONS (6)
  - Asthma [Not Recovered/Not Resolved]
  - Nasopharyngitis [Unknown]
  - Drug dose omission [Unknown]
  - Inappropriate schedule of drug administration [Unknown]
  - Underdose [Unknown]
  - Product quality issue [Unknown]
